FAERS Safety Report 26010976 (Version 1)
Quarter: 2025Q4

REPORT INFORMATION
  Report Type: Spontaneous
  Country: JP (occurrence: JP)
  Receive Date: 20251107
  Receipt Date: 20251107
  Transmission Date: 20260118
  Serious: Yes (Hospitalization)
  Sender: MYLAN
  Company Number: JP-VIATRISJAPAN-2025M1093013AA

PATIENT
  Age: 2 Decade
  Sex: Male

DRUGS (4)
  1. ANHIBA [Suspect]
     Active Substance: ACETAMINOPHEN
     Indication: Product used for unknown indication
     Dosage: UNK
  2. ANHIBA [Suspect]
     Active Substance: ACETAMINOPHEN
     Dosage: UNK
     Route: 065
  3. ANHIBA [Suspect]
     Active Substance: ACETAMINOPHEN
     Dosage: UNK
     Route: 065
  4. ANHIBA [Suspect]
     Active Substance: ACETAMINOPHEN
     Dosage: UNK

REACTIONS (1)
  - Toxicity to various agents [Unknown]
